FAERS Safety Report 6061398-4 (Version None)
Quarter: 2009Q1

REPORT INFORMATION
  Report Type: 
  Country: None (occurrence: None)
  Receive Date: 20090129
  Receipt Date: 20090129
  Transmission Date: 20090719
  Serious: Yes (Other)
  Sender: FDA-Public Use
  Company Number: None

PATIENT
  Age: 64 Year
  Sex: Female
  Weight: 43.0917 kg

DRUGS (1)
  1. CLINDAMYCIN HCL [Suspect]
     Indication: ORTHODONTIC PROCEDURE
     Dates: start: 20080801, end: 20080815

REACTIONS (2)
  - CLOSTRIDIUM DIFFICILE COLITIS [None]
  - WEIGHT DECREASED [None]
